FAERS Safety Report 9495423 (Version 2)
Quarter: 2013Q3

REPORT INFORMATION
  Report Type: Spontaneous
  Country: US (occurrence: US)
  Receive Date: 20130903
  Receipt Date: 20130918
  Transmission Date: 20140515
  Serious: No
  Sender: FDA-Public Use
  Company Number: US-PFIZER INC-2013251347

PATIENT
  Age: 61 Year
  Sex: Male

DRUGS (22)
  1. XELJANZ [Suspect]
     Indication: RHEUMATOID ARTHRITIS
     Dosage: 5 MG, 2X/DAY
     Route: 048
  2. ONGLYZA [Concomitant]
     Dosage: 2.5MG
  3. SINGULAIR [Concomitant]
     Dosage: 10 MG
  4. METHOTREXATE [Concomitant]
     Dosage: 2.5 MG
  5. PREDNISONE [Concomitant]
     Dosage: 1 MG
  6. TRILIPIX [Concomitant]
     Dosage: 45 MG
  7. EXFORGE [Concomitant]
     Dosage: AMLODIPINE BESILATE 5MG/ VALSARTAN 320MG
  8. TERAZOSIN [Concomitant]
     Dosage: 2 MG
  9. METFORMIN [Concomitant]
     Dosage: 850 MG
  10. GLIMEPIRIDE [Concomitant]
     Dosage: 1 MG
  11. TRIAMCINOLONE [Concomitant]
     Dosage: LOT 0.1%
  12. VENTOLIN HFA [Concomitant]
     Dosage: UNK
  13. HYDROCHLOROTHIAZIDE [Concomitant]
     Dosage: 12.5 MG
  14. PREVACID [Concomitant]
     Dosage: 15 MG
  15. BYSTOLIC [Concomitant]
     Dosage: 5 MG
  16. ADVIL [Concomitant]
     Dosage: 200 MG
  17. RANITIDINE [Concomitant]
     Dosage: 150 MG
  18. VITAMIN D3 [Concomitant]
     Dosage: 1000UNIT
  19. CLOTRIMAZOLE [Concomitant]
     Dosage: 2%
  20. FISH OIL [Concomitant]
     Dosage: UNK
  21. FLAXSEED OIL [Concomitant]
     Dosage: UNK
  22. TYLENOL [Concomitant]
     Dosage: 500 MG

REACTIONS (1)
  - Flushing [Unknown]
